FAERS Safety Report 23504662 (Version 1)
Quarter: 2024Q1

REPORT INFORMATION
  Report Type: Report from Study
  Country: CA (occurrence: CO)
  Receive Date: 20240209
  Receipt Date: 20240209
  Transmission Date: 20240410
  Serious: Yes (Other)
  Sender: FDA-Public Use
  Company Number: CA-GLAXOSMITHKLINE-CO2024AMR016447

PATIENT

DRUGS (1)
  1. MEPOLIZUMAB [Suspect]
     Active Substance: MEPOLIZUMAB
     Indication: Asthma
     Dosage: 100 MG, MO

REACTIONS (5)
  - Choking [Recovered/Resolved]
  - Asphyxia [Not Recovered/Not Resolved]
  - Back pain [Recovered/Resolved]
  - Asthma [Recovered/Resolved]
  - Product dose omission issue [Unknown]
